FAERS Safety Report 15933232 (Version 1)
Quarter: 2019Q1

REPORT INFORMATION
  Report Type: Spontaneous
  Country: CN (occurrence: CN)
  Receive Date: 20190207
  Receipt Date: 20190207
  Transmission Date: 20190417
  Serious: Yes (Other)
  Sender: FDA-Public Use
  Company Number: CN-BAYER-2019-022490

PATIENT
  Sex: Female
  Weight: 50 kg

DRUGS (3)
  1. MEGLUMINE ADENOSINE CYCLOPHOSPHATE [Concomitant]
     Active Substance: ADENOSINE CYCLIC PHOSPHATE MEGLUMINE
  2. AVELOX [Suspect]
     Active Substance: MOXIFLOXACIN HYDROCHLORIDE
     Indication: SEPTIC SHOCK
     Dosage: 400 MG, QD
     Route: 041
     Dates: start: 20190110, end: 20190111
  3. IMIPENEM CILASTATIN ACTAVIS [Concomitant]

REACTIONS (2)
  - Heart rate decreased [Recovering/Resolving]
  - Sinus bradycardia [Recovering/Resolving]

NARRATIVE: CASE EVENT DATE: 20190110
